FAERS Safety Report 7806624-3 (Version None)
Quarter: 2011Q4

REPORT INFORMATION
  Report Type: 
  Country: None (occurrence: None)
  Receive Date: 20111011
  Receipt Date: 20111011
  Transmission Date: 20120403
  Serious: No
  Sender: FDA-Public Use
  Company Number: SE-JNJFOC-20111000908

PATIENT
  Age: 57 Year
  Sex: Male
  Weight: 112 kg

DRUGS (3)
  1. ABSTRAL [Suspect]
     Indication: PAIN
     Dosage: WHEN NEEDED
     Route: 065
  2. DURAGESIC-100 [Suspect]
     Route: 062
  3. DURAGESIC-100 [Suspect]
     Indication: PAIN
     Dosage: 3 X 100 UG/HR WITH CHANGE EVERY 2 DAYS
     Route: 062

REACTIONS (3)
  - DRUG INEFFECTIVE [None]
  - TREATMENT NONCOMPLIANCE [None]
  - INAPPROPRIATE SCHEDULE OF DRUG ADMINISTRATION [None]
